FAERS Safety Report 13859854 (Version 4)
Quarter: 2018Q1

REPORT INFORMATION
  Report Type: Spontaneous
  Country: US (occurrence: US)
  Receive Date: 20170811
  Receipt Date: 20180219
  Transmission Date: 20180508
  Serious: Yes (Death, Hospitalization)
  Sender: FDA-Public Use
  Company Number: US-ASTELLAS-2017US025190

PATIENT
  Age: 90 Year
  Sex: Male

DRUGS (1)
  1. XTANDI [Suspect]
     Active Substance: ENZALUTAMIDE
     Indication: PROSTATE CANCER
     Route: 048
     Dates: start: 20170613

REACTIONS (5)
  - Arthralgia [Unknown]
  - Death [Fatal]
  - Colostomy [Unknown]
  - Somnolence [Unknown]
  - Colostomy closure [Unknown]

NARRATIVE: CASE EVENT DATE: 20170613
